FAERS Safety Report 19225529 (Version 2)
Quarter: 2024Q4

REPORT INFORMATION
  Report Type: Spontaneous
  Country: DO (occurrence: DO)
  Receive Date: 20210506
  Receipt Date: 20241126
  Transmission Date: 20250114
  Serious: Yes (Death)
  Sender: TOLMAR
  Company Number: DO-TOLMAR, INC.-21DO026713

PATIENT
  Age: 75 Year
  Sex: Male

DRUGS (2)
  1. ELIGARD [Suspect]
     Active Substance: LEUPROLIDE ACETATE
     Indication: Prostate cancer
     Dosage: 45 MG
     Route: 058
     Dates: start: 202104
  2. ELIGARD [Suspect]
     Active Substance: LEUPROLIDE ACETATE
     Indication: Prostate cancer
     Dosage: 22.5 MILLIGRAM
     Dates: end: 202405

REACTIONS (7)
  - Metastases to bone [Fatal]
  - Metastases to kidney [Fatal]
  - Metastases to lung [Fatal]
  - Renal impairment [Fatal]
  - Decreased appetite [Unknown]
  - Myalgia [Recovering/Resolving]
  - Malaise [Unknown]

NARRATIVE: CASE EVENT DATE: 20210417
